FAERS Safety Report 5341005-6 (Version None)
Quarter: 2007Q2

REPORT INFORMATION
  Report Type: 
  Country: None (occurrence: None)
  Receive Date: 20070405
  Receipt Date: 20070125
  Transmission Date: 20071010
  Serious: No
  Sender: FDA-Public Use
  Company Number: US200701005019

PATIENT
  Age: 58 Year
  Sex: Female

DRUGS (4)
  1. CYMBALTA [Suspect]
     Indication: PANIC ATTACK
     Dosage: SEE IMAGE
     Route: 048
     Dates: start: 20061213, end: 20070101
  2. CYMBALTA [Suspect]
     Indication: PANIC ATTACK
     Dosage: SEE IMAGE
     Route: 048
     Dates: start: 20070102, end: 20070101
  3. CYMBALTA [Suspect]
     Indication: PANIC ATTACK
     Dosage: SEE IMAGE
     Route: 048
     Dates: start: 20070101
  4. XANAX [Concomitant]

REACTIONS (4)
  - NIGHTMARE [None]
  - PHOTOPSIA [None]
  - VISION BLURRED [None]
  - VITREOUS FLOATERS [None]
